FAERS Safety Report 7199746-4 (Version None)
Quarter: 2010Q4

REPORT INFORMATION
  Report Type: 
  Country: None (occurrence: None)
  Receive Date: 20101228
  Receipt Date: 20101215
  Transmission Date: 20110411
  Serious: Yes (Other)
  Sender: FDA-Public Use
  Company Number: PHHY2009CA46148

PATIENT
  Sex: Female

DRUGS (9)
  1. EXJADE [Suspect]
     Indication: MYELODYSPLASTIC SYNDROME
     Dosage: 1000 MG, QD
     Route: 048
     Dates: start: 20080101
  2. EXJADE [Suspect]
     Dosage: UNK
     Route: 048
  3. MAXERAN [Concomitant]
     Dosage: UNK
  4. ELAVIL [Concomitant]
     Dosage: UNK
  5. ACETAMINOPHEN [Concomitant]
     Dosage: UNK
  6. MANERIX [Concomitant]
  7. ONDASETRON [Concomitant]
  8. LEVOTHYROXINE [Concomitant]
  9. TEMAZEPAM [Concomitant]

REACTIONS (7)
  - CONSTIPATION [None]
  - DRY MOUTH [None]
  - DYSPHAGIA [None]
  - GASTRIC POLYPS [None]
  - NAUSEA [None]
  - SERUM FERRITIN INCREASED [None]
  - THROAT LESION [None]
